FAERS Safety Report 12559166 (Version 1)
Quarter: 2016Q3

REPORT INFORMATION
  Report Type: Spontaneous
  Country: None (occurrence: US)
  Receive Date: 20160715
  Receipt Date: 20160715
  Transmission Date: 20161109
  Serious: No
  Sender: FDA-Public Use
  Company Number: US-TEVA-662166USA

PATIENT
  Sex: Female

DRUGS (1)
  1. ZECUITY [Suspect]
     Active Substance: SUMATRIPTAN SUCCINATE
     Dosage: 6.5 MGOVER 4 HOURS
     Route: 062
     Dates: start: 201602

REACTIONS (3)
  - Application site erythema [Recovered/Resolved]
  - Product leakage [Unknown]
  - Product physical issue [Unknown]
